FAERS Safety Report 18761685 (Version 1)
Quarter: 2021Q1

REPORT INFORMATION
  Report Type: Spontaneous
  Country: US (occurrence: US)
  Receive Date: 20210119
  Receipt Date: 20210119
  Transmission Date: 20210419
  Serious: No
  Sender: FDA-Public Use
  Company Number: None

PATIENT
  Age: 47 Year
  Sex: Female
  Weight: 59.85 kg

DRUGS (1)
  1. OMEPRAZOLE DR 40 MG CAPSULE [Suspect]
     Active Substance: OMEPRAZOLE
     Indication: GASTROOESOPHAGEAL REFLUX DISEASE
     Dosage: ?          QUANTITY:1 CAPSULE(S);?
     Route: 048
     Dates: start: 20210114, end: 20210117

REACTIONS (4)
  - Pain in extremity [None]
  - Arthralgia [None]
  - Myalgia [None]
  - Adverse drug reaction [None]

NARRATIVE: CASE EVENT DATE: 20210115
